FAERS Safety Report 25223559 (Version 2)
Quarter: 2025Q2

REPORT INFORMATION
  Report Type: Spontaneous
  Country: US (occurrence: US)
  Receive Date: 20250422
  Receipt Date: 20250424
  Transmission Date: 20250716
  Serious: No
  Sender: ROCHE
  Company Number: US-ROCHE-10000263800

PATIENT
  Sex: Male

DRUGS (1)
  1. HEMLIBRA [Suspect]
     Active Substance: EMICIZUMAB-KXWH
     Indication: Factor VIII deficiency
     Dosage: DOSE STRENGTH: 60 MG/0.4 ML
     Route: 058
     Dates: start: 202303

REACTIONS (3)
  - Arthralgia [Unknown]
  - Sinusitis [Unknown]
  - Gastrointestinal pain [Unknown]
